FAERS Safety Report 24622242 (Version 2)
Quarter: 2024Q4

REPORT INFORMATION
  Report Type: Report from Study
  Country: US (occurrence: US)
  Receive Date: 20241114
  Receipt Date: 20241202
  Transmission Date: 20250115
  Serious: No
  Sender: INSMED
  Company Number: US-INSMED, INC.-2024-04475-US

PATIENT
  Sex: Female

DRUGS (2)
  1. ARIKAYCE [Suspect]
     Active Substance: AMIKACIN
     Indication: Mycobacterium avium complex infection
     Dosage: UNK, UNK
     Route: 055
     Dates: start: 20241008, end: 20241026
  2. ETHAMBUTOL [Concomitant]
     Active Substance: ETHAMBUTOL HYDROCHLORIDE
     Indication: Product used for unknown indication
     Dosage: UNK, QD

REACTIONS (8)
  - Heart rate irregular [Recovered/Resolved]
  - Cold sweat [Recovered/Resolved]
  - Fatigue [Not Recovered/Not Resolved]
  - Malaise [Recovered/Resolved]
  - Dizziness [Recovered/Resolved]
  - Asthenia [Recovered/Resolved]
  - Nausea [Recovered/Resolved]
  - Dyspnoea [Not Recovered/Not Resolved]

NARRATIVE: CASE EVENT DATE: 20240101
